FAERS Safety Report 13882232 (Version 4)
Quarter: 2017Q4

REPORT INFORMATION
  Report Type: Spontaneous
  Country: FI (occurrence: FI)
  Receive Date: 20170818
  Receipt Date: 20171201
  Transmission Date: 20180320
  Serious: Yes (Life-Threatening, Hospitalization, Other)
  Sender: FDA-Public Use
  Company Number: FI-SA-2017SA148091

PATIENT
  Age: 35 Year
  Sex: Female

DRUGS (10)
  1. BACLOFEN. [Concomitant]
     Active Substance: BACLOFEN
     Route: 037
  2. CIPRALEX [Concomitant]
     Active Substance: ESCITALOPRAM OXALATE
     Route: 065
  3. OPAMOX [Concomitant]
     Active Substance: OXAZEPAM
     Route: 065
  4. LEMTRADA [Suspect]
     Active Substance: ALEMTUZUMAB
     Indication: MULTIPLE SCLEROSIS
     Route: 041
     Dates: start: 20160824, end: 20160826
  5. MELATONIN [Concomitant]
     Active Substance: MELATONIN
     Route: 065
  6. LEMTRADA [Suspect]
     Active Substance: ALEMTUZUMAB
     Indication: MULTIPLE SCLEROSIS
     Route: 041
     Dates: start: 20150817, end: 20150821
  7. MIRTAZAPINE. [Concomitant]
     Active Substance: MIRTAZAPINE
     Route: 065
  8. CALCICHEW [Concomitant]
     Active Substance: CALCIUM CARBONATE
     Route: 065
  9. FAMPYRA [Concomitant]
     Active Substance: DALFAMPRIDINE
     Route: 065
  10. FOLIVER [Concomitant]
     Route: 065

REACTIONS (14)
  - Blood bilirubin increased [Recovered/Resolved]
  - Escherichia test positive [Unknown]
  - Blood lactate dehydrogenase increased [Recovered/Resolved]
  - ADAMTS13 activity decreased [Recovered/Resolved]
  - Cerebral artery embolism [Recovered/Resolved]
  - Thrombotic thrombocytopenic purpura [Recovered/Resolved]
  - Haemoglobin decreased [Recovered/Resolved]
  - Splenomegaly [Unknown]
  - Platelet count decreased [Recovered/Resolved]
  - Cerebrovascular accident [Recovered/Resolved]
  - Cerebral infarction [Recovered/Resolved]
  - C-reactive protein increased [Recovered/Resolved]
  - Thrombotic microangiopathy [Recovered/Resolved]
  - White blood cell count decreased [Unknown]

NARRATIVE: CASE EVENT DATE: 20170520
